FAERS Safety Report 5365164-4 (Version None)
Quarter: 2007Q2

REPORT INFORMATION
  Report Type: 
  Country: None (occurrence: None)
  Receive Date: 20070530
  Receipt Date: 20070123
  Transmission Date: 20071010
  Serious: No
  Sender: FDA-Public Use
  Company Number: 2006PV018369

PATIENT
  Age: 49 Year
  Sex: Male
  Weight: 81.6475 kg

DRUGS (3)
  1. BYETTA [Suspect]
     Indication: GLUCOSE TOLERANCE IMPAIRED
     Dosage: 10 MCG; BID; SC; 5 MCG;BID;SC; 5 MCG; SC
     Route: 058
     Dates: start: 20060601, end: 20060701
  2. BYETTA [Suspect]
     Indication: GLUCOSE TOLERANCE IMPAIRED
     Dosage: 10 MCG; BID; SC; 5 MCG;BID;SC; 5 MCG; SC
     Route: 058
     Dates: start: 20060701, end: 20060801
  3. BYETTA [Suspect]
     Indication: GLUCOSE TOLERANCE IMPAIRED
     Dosage: 10 MCG; BID; SC; 5 MCG;BID;SC; 5 MCG; SC
     Route: 058
     Dates: start: 20060801

REACTIONS (4)
  - DECREASED APPETITE [None]
  - OVERDOSE [None]
  - VOMITING [None]
  - WEIGHT DECREASED [None]
